FAERS Safety Report 16214002 (Version 2)
Quarter: 2019Q2

REPORT INFORMATION
  Report Type: Report from Study
  Country: US (occurrence: US)
  Receive Date: 20190418
  Receipt Date: 20190530
  Transmission Date: 20190711
  Serious: Yes (Life-Threatening, Hospitalization)
  Sender: FDA-Public Use
  Company Number: US-PFIZER INC-2019162953

PATIENT
  Age: 18 Year
  Sex: Male
  Weight: 64.9 kg

DRUGS (6)
  1. METHOTREXATE SODIUM. [Suspect]
     Active Substance: METHOTREXATE SODIUM
     Indication: ACUTE LYMPHOCYTIC LEUKAEMIA
     Dosage: 15 MG, SINGLE
     Route: 037
     Dates: start: 20190305
  2. CYTARABINE. [Suspect]
     Active Substance: CYTARABINE
     Indication: ACUTE LYMPHOCYTIC LEUKAEMIA
     Dosage: 132 MG, QD
     Route: 042
     Dates: start: 20190305
  3. VINCRISTINE SULFATE. [Suspect]
     Active Substance: VINCRISTINE SULFATE
     Indication: ACUTE LYMPHOCYTIC LEUKAEMIA
     Dosage: 2 MG, SINGLE
     Route: 042
     Dates: start: 20190319
  4. ASPARAGINASE [Suspect]
     Active Substance: ASPARAGINASE
     Indication: ACUTE LYMPHOCYTIC LEUKAEMIA
     Dosage: 44000 IU, MON-WED-FRI
     Dates: start: 20190322, end: 20190327
  5. INCB018424 [Suspect]
     Active Substance: RUXOLITINIB
     Indication: ACUTE LYMPHOCYTIC LEUKAEMIA
     Dosage: 90 MG, BID
     Route: 048
     Dates: start: 20190305, end: 20190306
  6. INCB018424 [Suspect]
     Active Substance: RUXOLITINIB
     Dosage: 90 MG, BID
     Route: 048
     Dates: start: 20190307

REACTIONS (4)
  - Chills [Recovering/Resolving]
  - Pyrexia [Recovered/Resolved]
  - Pyrexia [Recovering/Resolving]
  - Haemodynamic instability [Recovered/Resolved]

NARRATIVE: CASE EVENT DATE: 20190306
